FAERS Safety Report 4439850-4 (Version None)
Quarter: 2004Q3

REPORT INFORMATION
  Report Type: 
  Country: None (occurrence: None)
  Receive Date: 20040902
  Receipt Date: 20040824
  Transmission Date: 20050211
  Serious: Yes (Other)
  Sender: FDA-Public Use
  Company Number: BE-ROCHE-378423

PATIENT
  Age: 73 Year
  Sex: Male

DRUGS (3)
  1. PEGASYS [Suspect]
     Indication: HEPATITIS C
     Route: 058
  2. COPEGUS [Concomitant]
     Indication: HEPATITIS C
     Route: 048
  3. SINTROM [Concomitant]
     Indication: PLATELET AGGREGATION INHIBITION

REACTIONS (1)
  - FACIAL PALSY [None]
